FAERS Safety Report 9167932 (Version 1)
Quarter: 2013Q1

REPORT INFORMATION
  Report Type: Spontaneous
  Country: AT (occurrence: AT)
  Receive Date: 20130318
  Receipt Date: 20130318
  Transmission Date: 20140127
  Serious: Yes (Other)
  Sender: FDA-Public Use
  Company Number: AT-MILLENNIUM PHARMACEUTICALS, INC.-2013-01983

PATIENT
  Sex: 0

DRUGS (2)
  1. VELCADE [Suspect]
     Indication: PLASMA CELL MYELOMA
     Dosage: UNK
  2. VELCADE [Suspect]
     Dosage: 0.7 MG/M2, UNK
     Route: 058
     Dates: start: 20130307

REACTIONS (2)
  - Circulatory collapse [Recovering/Resolving]
  - Paraesthesia [Recovering/Resolving]
